FAERS Safety Report 14195293 (Version 1)
Quarter: 2017Q4

REPORT INFORMATION
  Report Type: Spontaneous
  Country: US (occurrence: US)
  Receive Date: 20171116
  Receipt Date: 20171116
  Transmission Date: 20180321
  Serious: No
  Sender: FDA-Public Use
  Company Number: US-MISSION PHARMACAL COMPANY-2034308

PATIENT
  Age: 48 Year
  Sex: Female

DRUGS (2)
  1. ZYRTEC [Concomitant]
     Active Substance: CETIRIZINE HYDROCHLORIDE
     Route: 065
  2. THIOLA [Suspect]
     Active Substance: TIOPRONIN
     Indication: CYSTINURIA
     Route: 065
     Dates: start: 20170217

REACTIONS (7)
  - Arthralgia [None]
  - Nephrolithiasis [None]
  - Rash pruritic [Unknown]
  - Pain in extremity [None]
  - Pain [Unknown]
  - Drug ineffective [Recovering/Resolving]
  - Pain of skin [None]
